FAERS Safety Report 11121527 (Version 1)
Quarter: 2015Q2

REPORT INFORMATION
  Report Type: Report from Study
  Country: FR (occurrence: FR)
  Receive Date: 20150519
  Receipt Date: 20150519
  Transmission Date: 20150821
  Serious: Yes (Hospitalization)
  Sender: FDA-Public Use
  Company Number: FR-GLAXOSMITHKLINE-FR2015GSK067444

PATIENT
  Age: 70 Year
  Sex: Male

DRUGS (5)
  1. TAHOR [Concomitant]
     Active Substance: ATORVASTATIN CALCIUM
  2. TENORMIN [Concomitant]
     Active Substance: ATENOLOL
  3. TRIATEC [Concomitant]
     Active Substance: RAMIPRIL
  4. PREVISCAN (FLUINDIONE) [Concomitant]
     Active Substance: FLUINDIONE
  5. OMEGA-3-ACID ETHYL ESTERS. [Suspect]
     Active Substance: OMEGA-3-ACID ETHYL ESTERS
     Indication: ISCHAEMIC HEART DISEASE PROPHYLAXIS
     Dosage: UNK
     Dates: start: 20060831, end: 20120804

REACTIONS (2)
  - Spinal disorder [Unknown]
  - Investigation [Unknown]

NARRATIVE: CASE EVENT DATE: 201103
